FAERS Safety Report 4662392-8 (Version None)
Quarter: 2005Q2

REPORT INFORMATION
  Report Type: 
  Country: None (occurrence: None)
  Receive Date: 20050512
  Receipt Date: 20050429
  Transmission Date: 20051028
  Serious: Yes (Hospitalization, Other)
  Sender: FDA-Public Use
  Company Number: 2005069066

PATIENT
  Age: 75 Year
  Sex: Male
  Weight: 90 kg

DRUGS (9)
  1. FRAGMIN [Suspect]
     Indication: ILL-DEFINED DISORDER
     Dosage: 5000 UNITS (1 IN 1 D), SUBCUTANEOUS
     Route: 058
     Dates: start: 20030515, end: 20030516
  2. TRAMADOL HCL [Suspect]
     Indication: ILL-DEFINED DISORDER
     Dosage: 200 MG (50 MG, 4 IN 1 D), ORAL
     Route: 048
     Dates: start: 20030513
  3. PARACETAMOL (PARACETAMOL) (PARACETAMOL) [Suspect]
     Indication: ILL-DEFINED DISORDER
     Dosage: 3 GRAM (1 GRAM, 3 IN 1 D), ORAL
     Route: 048
     Dates: start: 20030509
  4. FONDAPARINUX SODIUM (FONDAPARINUX SODIUM) [Suspect]
     Indication: ILL-DEFINED DISORDER
     Dosage: 1 DOSE FORM (1 IN 1 D), SUBCUTANEOUS
     Route: 058
     Dates: start: 20030509, end: 20030514
  5. OMEPRAZOLE [Suspect]
     Indication: ILL-DEFINED DISORDER
     Dosage: 20 MG (20 MG, 1 IN 1 D), ORAL
     Route: 048
     Dates: start: 20030509
  6. HEPARIN-FRACTION, SODIUM SALT (HEPARIN-FRACTION, SODIUM SALT) [Suspect]
     Indication: ILL-DEFINED DISORDER
     Dosage: 2 DOSE FORMS (TWICE A DAY), SUBCUTANEOUS
     Route: 058
     Dates: start: 20030504, end: 20030508
  7. FLUINDIONE (FLUINDIONE) [Concomitant]
  8. PRAVASTATIN [Concomitant]
  9. ALLOPURINOL [Concomitant]

REACTIONS (10)
  - ACTIVATED PARTIAL THROMBOPLASTIN TIME SHORTENED [None]
  - DEEP VEIN THROMBOSIS [None]
  - EMBOLISM [None]
  - INTERNATIONAL NORMALISED RATIO INCREASED [None]
  - OXYGEN SATURATION DECREASED [None]
  - PLATELET COUNT ABNORMAL [None]
  - PROTHROMBIN TIME ABNORMAL [None]
  - TACHYCARDIA [None]
  - THERAPEUTIC RESPONSE DECREASED [None]
  - THROMBOPHLEBITIS [None]
